FAERS Safety Report 15671848 (Version 1)
Quarter: 2018Q4

REPORT INFORMATION
  Report Type: Report from Study
  Country: US (occurrence: US)
  Receive Date: 20181129
  Receipt Date: 20181129
  Transmission Date: 20190205
  Serious: No
  Sender: FDA-Public Use
  Company Number: US-TESARO-US-2018TSO01564

PATIENT
  Sex: Female

DRUGS (6)
  1. LASIX [Concomitant]
     Active Substance: FUROSEMIDE
     Indication: PRODUCT USED FOR UNKNOWN INDICATION
     Dosage: UNK
  2. ZEJULA [Suspect]
     Active Substance: NIRAPARIB
     Indication: COLON CANCER
     Dosage: 100 MG, BID
     Route: 048
     Dates: start: 20180508, end: 20180702
  3. ZEJULA [Suspect]
     Active Substance: NIRAPARIB
     Indication: RECTAL CANCER
     Dosage: 200 MG, QD
     Route: 048
     Dates: start: 20180206
  4. ZEJULA [Suspect]
     Active Substance: NIRAPARIB
     Indication: RECTAL CANCER
  5. ZEJULA [Suspect]
     Active Substance: NIRAPARIB
     Indication: GENITAL NEOPLASM MALIGNANT FEMALE
     Dosage: 300 MG, QD
     Route: 048
     Dates: start: 20170816
  6. ZEJULA [Suspect]
     Active Substance: NIRAPARIB
     Indication: GENITAL NEOPLASM MALIGNANT FEMALE
     Dosage: 200 MG, QD
     Route: 048

REACTIONS (3)
  - Platelet count decreased [Not Recovered/Not Resolved]
  - Eastern Cooperative Oncology Group performance status worsened [Unknown]
  - Emotional distress [Unknown]
